FAERS Safety Report 10641411 (Version 2)
Quarter: 2015Q1

REPORT INFORMATION
  Report Type: Spontaneous
  Country: US (occurrence: US)
  Receive Date: 20141209
  Receipt Date: 20150311
  Transmission Date: 20150720
  Serious: No
  Sender: FDA-Public Use
  Company Number: US-BAYER-2014-181203

PATIENT
  Age: 61 Year
  Sex: Male
  Weight: 77.98 kg

DRUGS (5)
  1. ALEVE PM [Suspect]
     Active Substance: DIPHENHYDRAMINE HYDROCHLORIDE\NAPROXEN SODIUM
     Indication: NASOPHARYNGITIS
     Dosage: 2 DF, QD
     Route: 048
     Dates: start: 20141126
  2. ALEVE PM [Suspect]
     Active Substance: DIPHENHYDRAMINE HYDROCHLORIDE\NAPROXEN SODIUM
     Indication: ARTHRALGIA
  3. LISINOPRIL. [Concomitant]
     Active Substance: LISINOPRIL
  4. SIMVASTATIN. [Concomitant]
     Active Substance: SIMVASTATIN
  5. DOXAZOSIN [Concomitant]
     Active Substance: DOXAZOSIN\DOXAZOSIN MESYLATE

REACTIONS (1)
  - Incorrect drug administration duration [None]

NARRATIVE: CASE EVENT DATE: 20141126
